FAERS Safety Report 24864012 (Version 1)
Quarter: 2025Q1

REPORT INFORMATION
  Report Type: Spontaneous
  Country: CN (occurrence: CN)
  Receive Date: 20250120
  Receipt Date: 20250120
  Transmission Date: 20250408
  Serious: Yes (Other)
  Sender: PURDUE
  Company Number: CN-NAPPMUNDI-GBR-2025-0122771

PATIENT
  Age: 63 Year
  Sex: Male
  Weight: 60 kg

DRUGS (1)
  1. MS CONTIN [Suspect]
     Active Substance: MORPHINE SULFATE
     Indication: Cancer pain
     Dosage: 20 MILLIGRAM, BID
     Route: 048
     Dates: start: 20241214, end: 20250104

REACTIONS (6)
  - Coma [Recovering/Resolving]
  - Confusional state [Recovering/Resolving]
  - Ocular icterus [Unknown]
  - Jaundice [Unknown]
  - Miosis [Unknown]
  - Respiratory rate decreased [Recovered/Resolved]

NARRATIVE: CASE EVENT DATE: 20250104
